APPROVED DRUG PRODUCT: DYCLOPRO
Active Ingredient: DYCLONINE HYDROCHLORIDE
Strength: 1%
Dosage Form/Route: SOLUTION;TOPICAL
Application: A200480 | Product #002
Applicant: SEPTODONT INC
Approved: Nov 20, 2018 | RLD: No | RS: Yes | Type: RX